FAERS Safety Report 13660427 (Version 1)
Quarter: 2017Q2

REPORT INFORMATION
  Report Type: Report from Study
  Country: US (occurrence: US)
  Receive Date: 20170616
  Receipt Date: 20170616
  Transmission Date: 20170830
  Serious: No
  Sender: FDA-Public Use
  Company Number: US-ROCHE-1949061

PATIENT
  Age: 47 Year
  Sex: Female

DRUGS (1)
  1. OCREVUS [Suspect]
     Active Substance: OCRELIZUMAB
     Indication: MULTIPLE SCLEROSIS RELAPSE
     Dosage: SUBSEQUENTLY RECEIVED ON 09/JUN/2017
     Route: 065
     Dates: start: 20170526

REACTIONS (6)
  - Scleritis [Unknown]
  - Nausea [Unknown]
  - Gait disturbance [Unknown]
  - Eye pain [Unknown]
  - Multiple sclerosis relapse [Unknown]
  - Oral herpes [Unknown]

NARRATIVE: CASE EVENT DATE: 20170528
